FAERS Safety Report 7131152-0 (Version None)
Quarter: 2010Q4

REPORT INFORMATION
  Report Type: 
  Country: None (occurrence: None)
  Receive Date: 20101201
  Receipt Date: 20101122
  Transmission Date: 20110411
  Serious: Yes (Hospitalization, Other)
  Sender: FDA-Public Use
  Company Number: SE-PFIZER INC-2010147114

PATIENT
  Age: 27 Year
  Sex: Female

DRUGS (2)
  1. ATARAX [Suspect]
     Dosage: 25 MG, UNK
     Route: 048
     Dates: start: 20100101
  2. SERTRALINE [Concomitant]
     Indication: DEPRESSION
     Dosage: UNK
     Dates: start: 20100401

REACTIONS (3)
  - LIP SWELLING [None]
  - PHARYNGEAL OEDEMA [None]
  - THROAT TIGHTNESS [None]
